FAERS Safety Report 4628375-9 (Version None)
Quarter: 2005Q2

REPORT INFORMATION
  Report Type: 
  Country: None (occurrence: None)
  Receive Date: 20050401
  Receipt Date: 20050318
  Transmission Date: 20051028
  Serious: Yes (Hospitalization)
  Sender: FDA-Public Use
  Company Number: ACO_0133_2005

PATIENT
  Age: 46 Year
  Sex: Female

DRUGS (7)
  1. ZANAFLEX [Suspect]
     Dosage: 4 MG PO
     Route: 048
     Dates: start: 20030101
  2. TRAZODONE HYDROCHLORIDE [Suspect]
     Indication: DEPRESSION
     Dosage: 100 MG PO
     Route: 048
     Dates: start: 20050222, end: 20050222
  3. TRAZODONE HYDROCHLORIDE [Suspect]
     Indication: INSOMNIA
     Dosage: 100 MG PO
     Route: 048
     Dates: start: 20050222, end: 20050222
  4. DILAUDID [Suspect]
     Dates: start: 20040301
  5. XANAX [Suspect]
     Dates: start: 20040801
  6. QUINAPRIL [Suspect]
  7. VALIUM [Suspect]
     Dates: start: 20040101

REACTIONS (6)
  - AMNESIA [None]
  - CONFUSIONAL STATE [None]
  - DEPRESSION [None]
  - INSOMNIA [None]
  - LETHARGY [None]
  - MUSCULAR WEAKNESS [None]
